FAERS Safety Report 6574815-8 (Version None)
Quarter: 2010Q1

REPORT INFORMATION
  Report Type: 
  Country: None (occurrence: None)
  Receive Date: 20100209
  Receipt Date: 20100204
  Transmission Date: 20100710
  Serious: Yes (Death)
  Sender: FDA-Public Use
  Company Number: PHEH2010US01849

PATIENT
  Sex: Female
  Weight: 28 kg

DRUGS (2)
  1. EXJADE [Suspect]
     Indication: SICKLE CELL ANAEMIA
     Dosage: 500 MG, QD
     Route: 048
     Dates: start: 20090323, end: 20090403
  2. EXJADE [Suspect]
     Indication: CHELATION THERAPY

REACTIONS (4)
  - CARDIAC FAILURE [None]
  - COMPLICATIONS OF BONE MARROW TRANSPLANT [None]
  - RENAL FAILURE [None]
  - RESPIRATORY FAILURE [None]
